FAERS Safety Report 4369886-3 (Version None)
Quarter: 2004Q2

REPORT INFORMATION
  Report Type: 
  Country: None (occurrence: None)
  Receive Date: 20040526
  Receipt Date: 20031229
  Transmission Date: 20050107
  Serious: Yes (Hospitalization)
  Sender: FDA-Public Use
  Company Number: USA031255435

PATIENT
  Age: 39 Year
  Sex: Male
  Weight: 91 kg

DRUGS (7)
  1. ZYPREXA [Suspect]
     Indication: SCHIZOPHRENIA, PARANOID TYPE
     Dosage: 80 MG/DAY
     Dates: start: 20031101
  2. RISPERDAL [Concomitant]
  3. PLAVIX [Concomitant]
  4. PROTONIX [Concomitant]
  5. LEXAPRO [Concomitant]
  6. ABILIFY [Concomitant]
  7. PREVACID [Concomitant]

REACTIONS (4)
  - AGGRESSION [None]
  - PARANOIA [None]
  - PRESCRIBED OVERDOSE [None]
  - SUICIDAL IDEATION [None]
